FAERS Safety Report 6186719-3 (Version None)
Quarter: 2009Q2

REPORT INFORMATION
  Report Type: 
  Country: None (occurrence: None)
  Receive Date: 20090508
  Receipt Date: 20090508
  Transmission Date: 20091009
  Serious: No
  Sender: FDA-Public Use
  Company Number: None

PATIENT
  Age: 54 Year
  Sex: Male
  Weight: 127.0072 kg

DRUGS (1)
  1. OXYCODONE HCL [Suspect]
     Indication: PAIN
     Dates: start: 20060601, end: 20090505

REACTIONS (3)
  - DRUG INEFFECTIVE [None]
  - PRODUCT SUBSTITUTION ISSUE [None]
  - RASH PRURITIC [None]
